FAERS Safety Report 12935661 (Version 10)
Quarter: 2019Q2

REPORT INFORMATION
  Report Type: Report from Study
  Country: US (occurrence: US)
  Receive Date: 20161114
  Receipt Date: 20190528
  Transmission Date: 20190711
  Serious: Yes (Hospitalization, Other)
  Sender: FDA-Public Use
  Company Number: PHHY2016US154330

PATIENT
  Age: 40 Year
  Sex: Female
  Weight: 79.38 kg

DRUGS (2)
  1. GILENYA [Suspect]
     Active Substance: FINGOLIMOD HYDROCHLORIDE
     Indication: MULTIPLE SCLEROSIS
     Dosage: 0.5 MG, QD
     Route: 048
     Dates: start: 20151209
  2. TIZANIDINE. [Concomitant]
     Active Substance: TIZANIDINE
     Indication: MULTIPLE SCLEROSIS
     Dosage: UNK
     Route: 065
     Dates: start: 20160628, end: 20161206

REACTIONS (26)
  - Skin lesion [Unknown]
  - Lymphocyte percentage decreased [Unknown]
  - High density lipoprotein increased [Unknown]
  - White blood cell count increased [Unknown]
  - Gamma-glutamyltransferase increased [Unknown]
  - Migraine [Recovered/Resolved with Sequelae]
  - Neutrophil count increased [Unknown]
  - White blood cell count decreased [Unknown]
  - Muscular weakness [Unknown]
  - Blood bilirubin decreased [Unknown]
  - Blood cholesterol increased [Unknown]
  - Alanine aminotransferase increased [Unknown]
  - Vitreous floaters [Unknown]
  - Syncope [Unknown]
  - High density lipoprotein decreased [Recovered/Resolved]
  - Low density lipoprotein increased [Unknown]
  - Blood alkaline phosphatase increased [Unknown]
  - Fall [Recovered/Resolved]
  - Monocyte count decreased [Unknown]
  - Fatigue [Unknown]
  - Tibia fracture [Unknown]
  - Migraine [Recovered/Resolved with Sequelae]
  - Staphylococcal infection [Unknown]
  - Monocyte count increased [Unknown]
  - Aspartate aminotransferase increased [Unknown]
  - Fibula fracture [Unknown]

NARRATIVE: CASE EVENT DATE: 20160628
